FAERS Safety Report 13378035 (Version 2)
Quarter: 2017Q2

REPORT INFORMATION
  Report Type: Spontaneous
  Country: IE (occurrence: IE)
  Receive Date: 20170328
  Receipt Date: 20170522
  Transmission Date: 20170830
  Serious: Yes (Life-Threatening, Hospitalization, Other)
  Sender: FDA-Public Use
  Company Number: IE-SA-2017SA050214

PATIENT
  Age: 73 Year
  Sex: Female

DRUGS (2)
  1. ASPIRIN. [Suspect]
     Active Substance: ASPIRIN
     Indication: THROMBOSIS PROPHYLAXIS
     Route: 065
  2. CLEXANE [Suspect]
     Active Substance: ENOXAPARIN SODIUM
     Indication: THROMBOSIS PROPHYLAXIS
     Route: 065

REACTIONS (11)
  - Joint swelling [Recovered/Resolved]
  - Skin lesion [Recovered/Resolved]
  - Erythema [Recovered/Resolved]
  - Pyrexia [Recovered/Resolved]
  - Haematoma [Recovered/Resolved]
  - Arthralgia [Recovered/Resolved]
  - Wound secretion [Recovered/Resolved]
  - Skin injury [Recovered/Resolved]
  - Eschar [Recovered/Resolved]
  - Bone lesion [Recovered/Resolved]
  - Staphylococcal infection [Recovered/Resolved]
